FAERS Safety Report 7231149-6 (Version None)
Quarter: 2011Q1

REPORT INFORMATION
  Report Type: 
  Country: None (occurrence: None)
  Receive Date: 20110118
  Receipt Date: 20110103
  Transmission Date: 20110831
  Serious: Yes (Congenital Anomaly)
  Sender: FDA-Public Use
  Company Number: A0680289A

PATIENT
  Sex: Male
  Weight: 3.4 kg

DRUGS (4)
  1. VIOXX [Concomitant]
  2. PAXIL CR [Suspect]
     Dosage: 25MG PER DAY
  3. PRENATAL VITAMINS [Concomitant]
  4. XANAX [Concomitant]

REACTIONS (3)
  - DRUG EXPOSURE DURING PREGNANCY [None]
  - HEART DISEASE CONGENITAL [None]
  - DEXTROCARDIA [None]
